FAERS Safety Report 17374363 (Version 6)
Quarter: 2021Q1

REPORT INFORMATION
  Report Type: Spontaneous
  Country: US (occurrence: US)
  Receive Date: 20200205
  Receipt Date: 20210211
  Transmission Date: 20210419
  Serious: No
  Sender: FDA-Public Use
  Company Number: US-PFIZER INC-2020049975

PATIENT
  Age: 70 Year
  Sex: Female
  Weight: 63.5 kg

DRUGS (4)
  1. XANAX [Suspect]
     Active Substance: ALPRAZOLAM
     Indication: ANXIETY
     Dosage: 0.5 MG (3?4 YEARS)
  2. XANAX [Suspect]
     Active Substance: ALPRAZOLAM
     Dosage: 1 MG, 3X/DAY
  3. XANAX [Suspect]
     Active Substance: ALPRAZOLAM
     Indication: ESSENTIAL TREMOR
     Dosage: ONE HALF TO ONE TABLET THREE TIMES DAILY
     Route: 048
     Dates: start: 2015
  4. XANAX [Suspect]
     Active Substance: ALPRAZOLAM
     Indication: PANIC DISORDER
     Dosage: 1 MG
     Dates: start: 20200801, end: 20200807

REACTIONS (7)
  - Illness [Unknown]
  - Feeling abnormal [Unknown]
  - Drug ineffective [Unknown]
  - Poor quality product administered [Unknown]
  - Diarrhoea [Unknown]
  - Intentional product misuse [Unknown]
  - Nausea [Unknown]
